FAERS Safety Report 12333411 (Version 1)
Quarter: 2016Q2

REPORT INFORMATION
  Report Type: Spontaneous
  Country: US (occurrence: US)
  Receive Date: 20160504
  Receipt Date: 20160504
  Transmission Date: 20160815
  Serious: No
  Sender: FDA-Public Use
  Company Number: US-BAYER-2016-083854

PATIENT
  Age: 29 Year
  Sex: Female
  Weight: 4.99 kg

DRUGS (1)
  1. ALEVE [Suspect]
     Active Substance: NAPROXEN SODIUM
     Indication: HEADACHE
     Dosage: 1 DF, PRN (DOSE REPORTED AS 1 ON WENDSDAY, 1 ON THURSDAY, THEN 2 FRIDAY, AND 2 MORE ON SATURDAY.)
     Route: 048

REACTIONS (1)
  - Drug ineffective [None]

NARRATIVE: CASE EVENT DATE: 201604
